FAERS Safety Report 15478501 (Version 1)
Quarter: 2018Q4

REPORT INFORMATION
  Report Type: Spontaneous
  Country: DE (occurrence: DE)
  Receive Date: 20181009
  Receipt Date: 20181009
  Transmission Date: 20190205
  Serious: Yes (Other)
  Sender: FDA-Public Use
  Company Number: DE-PFIZER INC-2018396904

PATIENT
  Age: 45 Year
  Sex: Male

DRUGS (4)
  1. LITHIUM. [Concomitant]
     Active Substance: LITHIUM
     Indication: DEPRESSION
     Dosage: UNK UNK, 1X/DAY 0-0-1 (IN THE EVENING)
  2. TAVOR (LORAZEPAM) [Suspect]
     Active Substance: LORAZEPAM
     Dosage: 0.5 MG, 1X/DAY 0-0-1
  3. TAVOR (LORAZEPAM) [Suspect]
     Active Substance: LORAZEPAM
     Dosage: 1.0 MG, 1X/DAY 0-0-1
  4. TAVOR (LORAZEPAM) [Suspect]
     Active Substance: LORAZEPAM
     Indication: DEPRESSION
     Dosage: 1.0 MG, 2X/DAY 1-0-1

REACTIONS (4)
  - Withdrawal syndrome [Unknown]
  - Anxiety [Unknown]
  - Stress [Unknown]
  - Suicidal ideation [Unknown]
